FAERS Safety Report 20392602 (Version 11)
Quarter: 2024Q3

REPORT INFORMATION
  Report Type: Report from Study
  Country: MX (occurrence: MX)
  Receive Date: 20220128
  Receipt Date: 20240925
  Transmission Date: 20241016
  Serious: Yes (Other)
  Sender: TAKEDA
  Company Number: MX-TAKEDA-MX202007399

PATIENT
  Age: 10 Year
  Sex: Male
  Weight: 37 kg

DRUGS (10)
  1. IDURSULFASE [Suspect]
     Active Substance: IDURSULFASE
     Indication: Mucopolysaccharidosis II
     Dosage: 29.4 MILLIGRAM, 1/WEEK
     Route: 042
     Dates: start: 201307
  2. IDURSULFASE [Suspect]
     Active Substance: IDURSULFASE
     Dosage: 18 MILLIGRAM, 1/WEEK
     Route: 042
     Dates: start: 20130703
  3. IDURSULFASE [Suspect]
     Active Substance: IDURSULFASE
     Dosage: 2.5 DOSAGE FORM, 1/WEEK
     Route: 042
     Dates: start: 20200211
  4. IDURSULFASE [Suspect]
     Active Substance: IDURSULFASE
     Dosage: UNK
     Route: 042
     Dates: start: 20200225
  5. IDURSULFASE [Suspect]
     Active Substance: IDURSULFASE
     Dosage: UNK UNK, 1/WEEK
     Route: 042
     Dates: start: 20200324
  6. IDURSULFASE [Suspect]
     Active Substance: IDURSULFASE
     Dosage: 3 DOSAGE FORM, 1/WEEK
     Route: 042
  7. IDURSULFASE [Suspect]
     Active Substance: IDURSULFASE
     Dosage: UNK UNK, 1/WEEK
     Route: 042
  8. IDURSULFASE [Suspect]
     Active Substance: IDURSULFASE
     Dosage: 29.9 MILLIGRAM, 1/WEEK
     Route: 017
  9. IDURSULFASE [Suspect]
     Active Substance: IDURSULFASE
     Dosage: 29.4 MILLIGRAM, 1/WEEK
     Route: 042
  10. IDURSULFASE [Suspect]
     Active Substance: IDURSULFASE
     Dosage: UNK
     Route: 042

REACTIONS (28)
  - Respiratory symptom [Not Recovered/Not Resolved]
  - Corneal disorder [Recovering/Resolving]
  - Pyrexia [Not Recovered/Not Resolved]
  - Illness [Unknown]
  - Poor venous access [Unknown]
  - Infusion site inflammation [Unknown]
  - Nervousness [Not Recovered/Not Resolved]
  - Stress [Unknown]
  - Hyperhidrosis [Not Recovered/Not Resolved]
  - Irritability [Unknown]
  - Skin abrasion [Unknown]
  - Scratch [Unknown]
  - Poor personal hygiene [Unknown]
  - Catheter site dryness [Not Recovered/Not Resolved]
  - Catheter site pruritus [Not Recovered/Not Resolved]
  - Catheter site irritation [Not Recovered/Not Resolved]
  - Pharyngitis [Not Recovered/Not Resolved]
  - COVID-19 [Recovered/Resolved]
  - Ear discomfort [Recovering/Resolving]
  - Oropharyngeal discomfort [Recovering/Resolving]
  - Infection [Recovering/Resolving]
  - Cough [Not Recovered/Not Resolved]
  - Product availability issue [Unknown]
  - Product dose omission issue [Unknown]
  - Inappropriate schedule of product administration [Not Recovered/Not Resolved]
  - Somnolence [Recovered/Resolved]
  - Migraine [Not Recovered/Not Resolved]
  - Dizziness [Recovered/Resolved]

NARRATIVE: CASE EVENT DATE: 20200218
